FAERS Safety Report 23208695 (Version 2)
Quarter: 2023Q4

REPORT INFORMATION
  Report Type: Spontaneous
  Country: US (occurrence: US)
  Receive Date: 20231121
  Receipt Date: 20231201
  Transmission Date: 20240110
  Serious: Yes (Hospitalization)
  Sender: FDA-Public Use
  Company Number: US-BRISTOL-MYERS SQUIBB COMPANY-2023-166143

PATIENT
  Age: 85 Year
  Sex: Male

DRUGS (2)
  1. LENALIDOMIDE [Suspect]
     Active Substance: LENALIDOMIDE
     Indication: Plasma cell myeloma
     Dosage: FREQUENCY: TAKE 1 CAPSULE (25MG) BY MOUTH EVERY DAY ON DAYS 1- 21 WITH 7 DAYS OFF IN A 28 DAY CYCLE.
     Route: 048
     Dates: start: 20230616
  2. LENALIDOMIDE [Suspect]
     Active Substance: LENALIDOMIDE
     Dates: start: 20231124

REACTIONS (1)
  - Hospitalisation [Not Recovered/Not Resolved]
